FAERS Safety Report 5633771-7 (Version None)
Quarter: 2008Q1

REPORT INFORMATION
  Report Type: 
  Country: None (occurrence: None)
  Receive Date: 20080219
  Receipt Date: 20080207
  Transmission Date: 20080703
  Serious: Yes (Other)
  Sender: FDA-Public Use
  Company Number: 2008AP000397

PATIENT
  Age: 57 Year
  Sex: Female

DRUGS (6)
  1. PAROXETINE HCL [Suspect]
     Indication: DEPRESSION
     Dosage: 20 MG;TAB; PO; QD; 10 MG;TAB;PO;BID; 10 MG;TAB;PO;QD
     Route: 048
     Dates: start: 19990819
  2. PAROXETINE HCL [Suspect]
     Indication: DEPRESSION
     Dosage: 20 MG;TAB; PO; QD; 10 MG;TAB;PO;BID; 10 MG;TAB;PO;QD
     Route: 048
     Dates: start: 20020802
  3. PAROXETINE HCL [Suspect]
     Indication: DEPRESSION
     Dosage: 20 MG;TAB; PO; QD; 10 MG;TAB;PO;BID; 10 MG;TAB;PO;QD
     Route: 048
     Dates: start: 20030103
  4. AMITRIPTYLINE HCL [Concomitant]
  5. CITALOPRAM HYDROBROMIDE [Concomitant]
  6. PHENYTOIN [Concomitant]

REACTIONS (1)
  - DRUG WITHDRAWAL SYNDROME [None]
